FAERS Safety Report 9284118 (Version 2)
Quarter: 2013Q3

REPORT INFORMATION
  Report Type: Spontaneous
  Country: FR (occurrence: FR)
  Receive Date: 20130509
  Receipt Date: 20130726
  Transmission Date: 20140515
  Serious: Yes (Other)
  Sender: FDA-Public Use
  Company Number: FR-RB-050440-13

PATIENT
  Age: 14 Year
  Sex: Female
  Weight: 50 kg

DRUGS (2)
  1. SUBOXONE TABLET [Suspect]
     Indication: PRODUCT SUBSTITUTION ISSUE
     Dosage: IN THE MORNING
     Route: 060
     Dates: start: 20120701
  2. SERTRALINE [Concomitant]
     Indication: PRODUCT USED FOR UNKNOWN INDICATION
     Dosage: DOSING DETAILS UNKNOWN
     Route: 065

REACTIONS (3)
  - Pruritus [Unknown]
  - Skin lesion [Unknown]
  - Drug hypersensitivity [Unknown]
